FAERS Safety Report 16302151 (Version 1)
Quarter: 2019Q2

REPORT INFORMATION
  Report Type: Spontaneous
  Country: US (occurrence: US)
  Receive Date: 20190405
  Receipt Date: 20190405
  Transmission Date: 20190711
  Serious: Yes (Other)
  Sender: FDA-Public Use
  Company Number: None

PATIENT
  Age: 15 Month
  Sex: Male

DRUGS (1)
  1. NEUPOGEN [Suspect]
     Active Substance: FILGRASTIM
     Indication: ADRENAL GLAND CANCER
     Route: 058
     Dates: start: 201803

REACTIONS (1)
  - Product use issue [None]

NARRATIVE: CASE EVENT DATE: 20190405
